FAERS Safety Report 6811899-3 (Version None)
Quarter: 2010Q3

REPORT INFORMATION
  Report Type: 
  Country: None (occurrence: None)
  Receive Date: 20100701
  Receipt Date: 20100622
  Transmission Date: 20110219
  Serious: Yes (Hospitalization)
  Sender: FDA-Public Use
  Company Number: US-JNJFOC-20100606978

PATIENT
  Sex: Female
  Weight: 57.15 kg

DRUGS (1)
  1. FENTANYL [Suspect]
     Indication: BACK PAIN
     Route: 062

REACTIONS (10)
  - ADVERSE EVENT [None]
  - AGITATION [None]
  - ANXIETY [None]
  - DRUG DOSE OMISSION [None]
  - HEART RATE INCREASED [None]
  - HYPOVENTILATION [None]
  - INSOMNIA [None]
  - TREATMENT NONCOMPLIANCE [None]
  - WITHDRAWAL SYNDROME [None]
  - WRONG TECHNIQUE IN DRUG USAGE PROCESS [None]
